FAERS Safety Report 7076076-2 (Version None)
Quarter: 2010Q4

REPORT INFORMATION
  Report Type: 
  Country: None (occurrence: None)
  Receive Date: 20101101
  Receipt Date: 20101026
  Transmission Date: 20110411
  Serious: No
  Sender: FDA-Public Use
  Company Number: US-BIOGENIDEC-2010BI037060

PATIENT
  Sex: Female

DRUGS (3)
  1. AVONEX [Suspect]
     Indication: MULTIPLE SCLEROSIS
     Route: 030
     Dates: start: 20050607, end: 20080608
  2. AVONEX [Suspect]
     Route: 030
     Dates: start: 20080101
  3. TIZANIDINE HCL [Concomitant]
     Indication: MUSCLE SPASTICITY

REACTIONS (3)
  - ASTHENIA [None]
  - ATTENTION DEFICIT/HYPERACTIVITY DISORDER [None]
  - DYSPHAGIA [None]
